FAERS Safety Report 25030351 (Version 1)
Quarter: 2025Q1

REPORT INFORMATION
  Report Type: Spontaneous
  Country: CA (occurrence: CA)
  Receive Date: 20250303
  Receipt Date: 20250303
  Transmission Date: 20250409
  Serious: Yes (Other)
  Sender: Haleon PLC
  Company Number: CA-002147023-NVSC2024CA080964

PATIENT
  Age: 60 Year
  Sex: Female

DRUGS (2)
  1. DICLOFENAC [Suspect]
     Active Substance: DICLOFENAC
     Indication: Product used for unknown indication
     Dosage: 50 MG, BID, DURATION 31 DAYS
     Route: 048
  2. DICLOFENAC [Suspect]
     Active Substance: DICLOFENAC
     Route: 065

REACTIONS (4)
  - Peripheral spondyloarthritis [Unknown]
  - Gastrointestinal disorder [Unknown]
  - Axial spondyloarthritis [Unknown]
  - Drug intolerance [Unknown]
